FAERS Safety Report 10949197 (Version 1)
Quarter: 2015Q1

REPORT INFORMATION
  Report Type: Spontaneous
  Country: US (occurrence: None)
  Receive Date: 20150323
  Receipt Date: 20150323
  Transmission Date: 20150721
  Serious: Yes (Hospitalization)
  Sender: FDA-Public Use
  Company Number: None

PATIENT
  Age: 51 Year
  Sex: Female
  Weight: 63 kg

DRUGS (1)
  1. INTRON A [Suspect]
     Active Substance: INTERFERON ALFA-2B
     Dosage: 51 MU
     Dates: end: 20140829

REACTIONS (7)
  - Hypophagia [None]
  - Nausea [None]
  - Retching [None]
  - Gastritis erosive [None]
  - Vomiting [None]
  - Gastric occult blood positive [None]
  - Gastric polyps [None]

NARRATIVE: CASE EVENT DATE: 20140830
